FAERS Safety Report 6382972-1 (Version None)
Quarter: 2009Q3

REPORT INFORMATION
  Report Type: 
  Country: None (occurrence: None)
  Receive Date: 20090930
  Receipt Date: 20090827
  Transmission Date: 20100115
  Serious: Yes (Death, Hospitalization, Other)
  Sender: FDA-Public Use
  Company Number: US-BAXTER-2008BH003081

PATIENT
  Age: 68 Year
  Sex: Male

DRUGS (19)
  1. HEPARIN SODIUM INJECTION [Suspect]
     Indication: THROMBOSIS PROPHYLAXIS
     Dosage: DOSE UNIT:UNKNOWN
     Route: 042
     Dates: start: 20040101, end: 20080101
  2. HEPARIN SODIUM INJECTION [Suspect]
     Route: 042
     Dates: start: 20080215, end: 20080215
  3. HEPARIN SODIUM INJECTION [Suspect]
     Route: 042
     Dates: start: 20080217, end: 20080217
  4. HEPARIN SODIUM INJECTION [Suspect]
     Route: 042
     Dates: start: 20080218, end: 20080218
  5. HEPARIN SODIUM INJECTION [Suspect]
     Route: 042
     Dates: start: 20080220, end: 20080220
  6. PREDNISONE TAB [Concomitant]
     Indication: PULMONARY FIBROSIS
     Dosage: DOSE UNIT:UNKNOWN
     Route: 065
  7. RENAGEL [Concomitant]
     Indication: DRUG USE FOR UNKNOWN INDICATION
     Route: 065
  8. AVODART [Concomitant]
     Indication: DRUG USE FOR UNKNOWN INDICATION
     Route: 065
  9. PHENAZOPYRIDINE HCL TAB [Concomitant]
     Indication: DRUG USE FOR UNKNOWN INDICATION
     Route: 065
  10. CIPRO [Concomitant]
     Indication: DRUG USE FOR UNKNOWN INDICATION
     Route: 065
  11. AVELOX [Concomitant]
     Indication: DRUG USE FOR UNKNOWN INDICATION
     Route: 065
  12. PREDNISONE TAB [Concomitant]
     Indication: DRUG USE FOR UNKNOWN INDICATION
     Route: 065
  13. IRON [Concomitant]
     Indication: DRUG USE FOR UNKNOWN INDICATION
     Route: 065
  14. NOVEL ERYTHROPOIESIS STIMULATING PROTEIN [Concomitant]
     Indication: DRUG USE FOR UNKNOWN INDICATION
     Route: 065
  15. PREDNISONE TAB [Concomitant]
     Route: 065
  16. ZINC [Concomitant]
     Indication: DRUG USE FOR UNKNOWN INDICATION
     Route: 065
  17. ACETYLSALICYLIC ACID [Concomitant]
     Indication: DRUG USE FOR UNKNOWN INDICATION
     Route: 065
  18. VITAMIN B COMPLEX CAP [Concomitant]
     Indication: DRUG USE FOR UNKNOWN INDICATION
  19. HYDROXYZINE [Concomitant]
     Indication: DRUG USE FOR UNKNOWN INDICATION
     Route: 065

REACTIONS (18)
  - ASTHENIA [None]
  - BLOOD PRESSURE DECREASED [None]
  - CARDIO-RESPIRATORY ARREST [None]
  - DYSPHAGIA [None]
  - FATIGUE [None]
  - HEADACHE [None]
  - HEART RATE INCREASED [None]
  - INJECTION SITE PAIN [None]
  - LEUKOCYTOSIS [None]
  - NAUSEA [None]
  - ORAL CANDIDIASIS [None]
  - PNEUMONIA [None]
  - REGURGITATION [None]
  - RESPIRATORY DISTRESS [None]
  - TACHYARRHYTHMIA [None]
  - URINARY TRACT INFECTION [None]
  - VENTRICULAR FIBRILLATION [None]
  - VOMITING [None]
